FAERS Safety Report 16615468 (Version 1)
Quarter: 2019Q3

REPORT INFORMATION
  Report Type: Spontaneous
  Country: US (occurrence: US)
  Receive Date: 20190610
  Receipt Date: 20190610
  Transmission Date: 20191004
  Serious: No
  Sender: FDA-Public Use
  Company Number: None

PATIENT
  Age: 40 Year
  Sex: Male

DRUGS (1)
  1. TACROLIMUS CAP 1MG [Suspect]
     Active Substance: TACROLIMUS
     Indication: TRANSPLANT
     Route: 048
     Dates: start: 201806

REACTIONS (4)
  - Product dose omission [None]
  - Kidney transplant rejection [None]
  - Malaise [None]
  - Liver transplant rejection [None]

NARRATIVE: CASE EVENT DATE: 20190609
